FAERS Safety Report 24296254 (Version 1)
Quarter: 2024Q3

REPORT INFORMATION
  Report Type: Report from Study
  Country: US (occurrence: US)
  Receive Date: 20240909
  Receipt Date: 20240909
  Transmission Date: 20241017
  Serious: Yes (Hospitalization)
  Sender: ABBVIE
  Company Number: US-ABBVIE-5882205

PATIENT
  Sex: Male

DRUGS (2)
  1. HUMIRA [Suspect]
     Active Substance: ADALIMUMAB
     Indication: Product used for unknown indication
     Dosage: CITRATE FREE STRENGTH : HUMIRA 40MG/0.4ML
     Route: 058
     Dates: start: 20190109
  2. HUMIRA [Suspect]
     Active Substance: ADALIMUMAB
     Dosage: CITRATE FREE STRENGTH : HUMIRA 40MG/0.4ML
     Route: 058

REACTIONS (2)
  - Cardiac operation [Unknown]
  - Psoriasis [Unknown]

NARRATIVE: CASE EVENT DATE: 20190101
